FAERS Safety Report 10088984 (Version 1)
Quarter: 2014Q2

REPORT INFORMATION
  Report Type: Spontaneous
  Country: US (occurrence: None)
  Receive Date: 20140418
  Receipt Date: 20140418
  Transmission Date: 20141212
  Serious: No
  Sender: FDA-Public Use
  Company Number: None

PATIENT
  Age: 77 Year
  Sex: Female
  Weight: 58.97 kg

DRUGS (10)
  1. TRAMADOL [Suspect]
     Indication: HEADACHE
     Route: 048
     Dates: start: 20140329
  2. ACTONEL [Concomitant]
  3. LOSARTAN [Concomitant]
  4. TRICOR [Concomitant]
  5. METFORMIN [Concomitant]
  6. COMPLETE VITAMIN [Concomitant]
  7. VITAMIN C [Concomitant]
  8. VITAMIN D [Concomitant]
  9. CALCIUM [Concomitant]
  10. FISH OIL [Concomitant]

REACTIONS (1)
  - Urticaria [None]
